FAERS Safety Report 7914460-2 (Version None)
Quarter: 2011Q4

REPORT INFORMATION
  Report Type: 
  Country: None (occurrence: None)
  Receive Date: 20111110
  Receipt Date: 20111103
  Transmission Date: 20120403
  Serious: Yes (Death)
  Sender: FDA-Public Use
  Company Number: DSA_47597_2011

PATIENT
  Sex: Female

DRUGS (6)
  1. XENAZINE [Suspect]
     Indication: HUNTINGTON'S DISEASE
     Dosage: (25 MG TID ORAL)
     Route: 048
     Dates: start: 20090109, end: 20110802
  2. SIMVASTATIN [Concomitant]
  3. ZYPREXA [Concomitant]
  4. OMEPRAZOLE [Concomitant]
  5. MEGACE [Concomitant]
  6. SERTRALINE HYDROCHLORIDE [Concomitant]

REACTIONS (6)
  - RESTLESSNESS [None]
  - PNEUMONIA [None]
  - AGITATION [None]
  - INSOMNIA [None]
  - ANXIETY [None]
  - DYSKINESIA [None]
